FAERS Safety Report 15069600 (Version 1)
Quarter: 2018Q2

REPORT INFORMATION
  Report Type: Spontaneous
  Country: US (occurrence: US)
  Receive Date: 20180626
  Receipt Date: 20180626
  Transmission Date: 20180711
  Serious: Yes (Hospitalization, Other)
  Sender: FDA-Public Use
  Company Number: US-AMGEN-USASP2011052568

PATIENT
  Age: 58 Year
  Sex: Female

DRUGS (3)
  1. ADRIAMYCIN [Concomitant]
     Active Substance: DOXORUBICIN HYDROCHLORIDE
     Indication: SARCOMA
  2. CISPLATIN. [Concomitant]
     Active Substance: CISPLATIN
     Indication: SARCOMA
  3. NEULASTA [Suspect]
     Active Substance: PEGFILGRASTIM
     Indication: CHEMOTHERAPY
     Dosage: 6 MG, UNK
     Dates: start: 2011

REACTIONS (6)
  - Blood pressure decreased [Not Recovered/Not Resolved]
  - Tachycardia [Not Recovered/Not Resolved]
  - Loss of consciousness [Not Recovered/Not Resolved]
  - Hypersensitivity [Not Recovered/Not Resolved]
  - Oxygen saturation decreased [Not Recovered/Not Resolved]
  - Dizziness [Not Recovered/Not Resolved]

NARRATIVE: CASE EVENT DATE: 201108
